FAERS Safety Report 14951693 (Version 6)
Quarter: 2022Q3

REPORT INFORMATION
  Report Type: Report from Study
  Country: IL (occurrence: None)
  Receive Date: 20180530
  Receipt Date: 20220819
  Transmission Date: 20221027
  Serious: Yes (Hospitalization)
  Sender: FDA-Public Use
  Company Number: IL-ROCHE-2128891

PATIENT
  Age: 55 Year
  Sex: Female
  Weight: 84 kg

DRUGS (11)
  1. ATEZOLIZUMAB [Suspect]
     Active Substance: ATEZOLIZUMAB
     Indication: Metastatic malignant melanoma
     Dosage: MOST RECENT DOSE OF BLINDED ATEZOLIZUMAB ON 9/APR/2018
     Route: 042
     Dates: start: 20171023
  2. VEMURAFENIB [Suspect]
     Active Substance: VEMURAFENIB
     Indication: Metastatic malignant melanoma
     Dosage: MOST RECENT DOSE OF VEMURAFENIB ON 17/APR/2018: 4DF?END DATE OF MOST RECENT DOSE OF STUDY DRUG PRIOR
     Route: 048
     Dates: start: 20170925
  3. COBIMETINIB [Suspect]
     Active Substance: COBIMETINIB
     Indication: Metastatic malignant melanoma
     Dosage: THREE, 20 MG TABLETS ON DAY 1 TO 21?MOST RECENT DOSE OF COBIMETINIB (40 MG) ON 17/APR/2018
     Route: 048
     Dates: start: 20170925
  4. NEOBLOC [Concomitant]
     Indication: Hypertension
     Route: 048
  5. METFORMIN HYDROCHLORIDE [Concomitant]
     Active Substance: METFORMIN HYDROCHLORIDE
     Indication: Diabetes mellitus
     Route: 048
  6. ASPIRIN [Concomitant]
     Active Substance: ASPIRIN
     Indication: Myocardial ischaemia
     Route: 048
  7. LIPITOR [Concomitant]
     Active Substance: ATORVASTATIN CALCIUM
     Indication: Hyperlipidaemia
     Route: 048
  8. LOSARTAN POTASSIUM AND HYDROCHLOROTHIAZIDE [Concomitant]
     Active Substance: HYDROCHLOROTHIAZIDE\LOSARTAN POTASSIUM
     Indication: Myocardial ischaemia
     Route: 048
  9. CIPRALEX [Concomitant]
     Active Substance: ESCITALOPRAM OXALATE
     Indication: Mood swings
     Route: 048
     Dates: start: 201710
  10. IMODIUM [Concomitant]
     Active Substance: LOPERAMIDE HYDROCHLORIDE
     Indication: Diarrhoea
     Route: 048
     Dates: start: 201710
  11. IMIPRAMINE [Concomitant]
     Active Substance: IMIPRAMINE
     Indication: Nausea
     Route: 048
     Dates: start: 20171121

REACTIONS (2)
  - Syncope [Recovered/Resolved]
  - Dizziness [Recovered/Resolved]

NARRATIVE: CASE EVENT DATE: 20180415
